FAERS Safety Report 6198084-6 (Version None)
Quarter: 2009Q2

REPORT INFORMATION
  Report Type: 
  Country: None (occurrence: None)
  Receive Date: 20090521
  Receipt Date: 20090513
  Transmission Date: 20091009
  Serious: Yes (Hospitalization)
  Sender: FDA-Public Use
  Company Number: JP-BAXTER-2009BH008665

PATIENT
  Age: 58 Year
  Sex: Male

DRUGS (3)
  1. DIANEAL [Suspect]
     Indication: RENAL FAILURE
     Route: 033
     Dates: start: 20071101
  2. DIANEAL [Suspect]
     Indication: RENAL FAILURE
     Route: 033
     Dates: start: 20071101
  3. EXTRANEAL [Suspect]
     Indication: RENAL FAILURE
     Route: 033

REACTIONS (1)
  - CONGESTIVE CARDIOMYOPATHY [None]
